FAERS Safety Report 11646242 (Version 2)
Quarter: 2016Q2

REPORT INFORMATION
  Report Type: Spontaneous
  Country: US (occurrence: US)
  Receive Date: 20151020
  Receipt Date: 20160429
  Transmission Date: 20160815
  Serious: No
  Sender: FDA-Public Use
  Company Number: US-ROCHE-1611518

PATIENT
  Sex: Female
  Weight: 81.72 kg

DRUGS (1)
  1. ESBRIET [Suspect]
     Active Substance: PIRFENIDONE
     Indication: IDIOPATHIC PULMONARY FIBROSIS
     Dosage: 2403 MG DAILY 3 CAPSULES TID
     Route: 048
     Dates: start: 20141215

REACTIONS (7)
  - Gastrooesophageal reflux disease [Unknown]
  - Breast pain [Unknown]
  - Throat irritation [Unknown]
  - Aphonia [Unknown]
  - Chromaturia [Unknown]
  - Drug dose omission [Unknown]
  - Pruritus [Unknown]
